FAERS Safety Report 6260930-5 (Version None)
Quarter: 2009Q3

REPORT INFORMATION
  Report Type: 
  Country: None (occurrence: None)
  Receive Date: 20090709
  Receipt Date: 20070430
  Transmission Date: 20100115
  Serious: Yes (Hospitalization, Other)
  Sender: FDA-Public Use
  Company Number: US-ASTRAZENECA-2006UW22205

PATIENT
  Age: 557 Month
  Sex: Female
  Weight: 75.7 kg

DRUGS (26)
  1. SEROQUEL [Suspect]
     Indication: ANXIETY
     Route: 048
     Dates: start: 20040101, end: 20060101
  2. SEROQUEL [Suspect]
     Indication: INSOMNIA
     Route: 048
     Dates: start: 20040101, end: 20060101
  3. SEROQUEL [Suspect]
     Route: 048
     Dates: start: 20050113
  4. SEROQUEL [Suspect]
     Route: 048
     Dates: start: 20050113
  5. LEXAPRO [Concomitant]
     Dates: start: 20030101
  6. METHADONE [Concomitant]
     Dates: start: 20000101, end: 20030101
  7. HEROIN [Concomitant]
     Dates: start: 20000101, end: 20030101
  8. ASPIRIN [Concomitant]
     Route: 048
  9. BISACODYL [Concomitant]
     Route: 048
  10. METFORMIN HCL [Concomitant]
     Dosage: 500 - 2500 MG
     Route: 048
  11. LISINOPRIL [Concomitant]
     Route: 048
  12. HYDROCODONE BITARTRATE + ACETAMINOPHEN [Concomitant]
     Dosage: 5 / 500 MG
     Route: 048
  13. CIPRO [Concomitant]
     Route: 048
  14. CLONIDINE [Concomitant]
     Route: 048
  15. AMITRIPTYLINE [Concomitant]
     Route: 048
  16. CARBINOXAMINE SYRUP [Concomitant]
     Route: 048
  17. LOW-OGESTREL TABLETS [Concomitant]
     Route: 048
  18. THIAMINE HCL [Concomitant]
     Route: 048
  19. ZITHROMAX [Concomitant]
     Route: 048
  20. PEPCID [Concomitant]
     Route: 048
  21. IBUPROFEN TABLETS [Concomitant]
     Route: 048
  22. PREVACID [Concomitant]
     Route: 048
  23. OXYCODONE HCL AND ACETAMINOPHEN [Concomitant]
     Dosage: 5/325 MG
     Route: 048
  24. DEXAMETHASONE [Concomitant]
     Route: 048
  25. ZOLOFT [Concomitant]
     Route: 048
  26. TRILEPTAL [Concomitant]
     Route: 048

REACTIONS (16)
  - ALANINE AMINOTRANSFERASE INCREASED [None]
  - ASPARTATE AMINOTRANSFERASE INCREASED [None]
  - BLOOD ALBUMIN DECREASED [None]
  - BLOOD ALKALINE PHOSPHATASE INCREASED [None]
  - BLOOD BILIRUBIN INCREASED [None]
  - BLOOD GLUCOSE DECREASED [None]
  - BLOOD SODIUM DECREASED [None]
  - COLON CANCER METASTATIC [None]
  - HAEMOGLOBIN DECREASED [None]
  - HYPERGLYCAEMIA [None]
  - HYPERPLASTIC CHOLECYSTOPATHY [None]
  - INJURY [None]
  - LUNG NEOPLASM [None]
  - NEUROPATHY PERIPHERAL [None]
  - RED BLOOD CELL COUNT DECREASED [None]
  - TYPE 2 DIABETES MELLITUS [None]
